FAERS Safety Report 10444539 (Version 5)
Quarter: 2017Q1

REPORT INFORMATION
  Report Type: Spontaneous
  Country: US (occurrence: US)
  Receive Date: 20140910
  Receipt Date: 20170213
  Transmission Date: 20170428
  Serious: Yes (Other)
  Sender: FDA-Public Use
  Company Number: US-JNJFOC-20140508699

PATIENT
  Sex: Male

DRUGS (6)
  1. RISPERDAL [Suspect]
     Active Substance: RISPERIDONE
     Indication: ATTENTION DEFICIT/HYPERACTIVITY DISORDER
     Dosage: DOSE: 0.5MG AND 1MG
     Route: 048
     Dates: start: 2005, end: 2014
  2. RISPERDAL [Suspect]
     Active Substance: RISPERIDONE
     Indication: ATTENTION DEFICIT/HYPERACTIVITY DISORDER
     Route: 048
     Dates: start: 200208, end: 200310
  3. RISPERDAL [Suspect]
     Active Substance: RISPERIDONE
     Indication: BIPOLAR DISORDER
     Dosage: DOSE: 0.5MG AND 1MG
     Route: 048
     Dates: start: 2005, end: 2014
  4. RISPERDAL [Suspect]
     Active Substance: RISPERIDONE
     Indication: BIPOLAR DISORDER
     Route: 048
     Dates: start: 200208, end: 200310
  5. RISPERDAL [Suspect]
     Active Substance: RISPERIDONE
     Indication: TOURETTE^S DISORDER
     Dosage: DOSE: 0.5MG AND 1MG
     Route: 048
     Dates: start: 2005, end: 2014
  6. RISPERDAL [Suspect]
     Active Substance: RISPERIDONE
     Indication: TOURETTE^S DISORDER
     Route: 048
     Dates: start: 200208, end: 200310

REACTIONS (4)
  - Gynaecomastia [Unknown]
  - Emotional distress [Unknown]
  - Depression [Unknown]
  - Obesity [Not Recovered/Not Resolved]

NARRATIVE: CASE EVENT DATE: 2005
